FAERS Safety Report 6318852-7 (Version None)
Quarter: 2009Q3

REPORT INFORMATION
  Report Type: 
  Country: None (occurrence: None)
  Receive Date: 20090821
  Receipt Date: 20090811
  Transmission Date: 20100115
  Serious: Yes (Disabling)
  Sender: FDA-Public Use
  Company Number: US-ELI_LILLY_AND_COMPANY-US200907002440

PATIENT
  Sex: Male

DRUGS (3)
  1. CYMBALTA [Suspect]
     Indication: DEPRESSION
     Dosage: 20 MG, 2/D
     Dates: start: 20081201
  2. CYMBALTA [Suspect]
     Dosage: 30 MG, 2/D
  3. CYMBALTA [Suspect]
     Dosage: 20 MG, 4/D

REACTIONS (5)
  - DISABILITY [None]
  - DRUG INEFFECTIVE [None]
  - DYSPNOEA [None]
  - FEELING ABNORMAL [None]
  - HEAT STROKE [None]
